FAERS Safety Report 5188263-9 (Version None)
Quarter: 2006Q4

REPORT INFORMATION
  Report Type: 
  Country: None (occurrence: None)
  Receive Date: 20061221
  Receipt Date: 20061114
  Transmission Date: 20070319
  Serious: Yes (Hospitalization)
  Sender: FDA-Public Use
  Company Number: JP-GLAXOSMITHKLINE-B0447144A

PATIENT
  Age: 79 Year
  Sex: Female

DRUGS (10)
  1. VALTREX [Suspect]
     Indication: HERPES ZOSTER
     Dosage: 500MG TWICE PER DAY
     Route: 048
     Dates: start: 20061110, end: 20061114
  2. TANATRIL [Concomitant]
     Indication: HYPERTENSION
     Dosage: 5MG PER DAY
     Route: 048
     Dates: end: 20061114
  3. ASPIRIN [Concomitant]
     Indication: CEREBRAL INFARCTION
     Dosage: 100MG PER DAY
     Route: 048
     Dates: end: 20061114
  4. NORVASC [Concomitant]
     Indication: HYPERTENSION
     Dosage: 5MG PER DAY
     Route: 048
     Dates: end: 20061114
  5. LENDORMIN [Concomitant]
     Indication: INSOMNIA
     Dosage: .215MG PER DAY
     Route: 048
     Dates: end: 20061114
  6. SENNOSIDE [Concomitant]
     Indication: CONSTIPATION
     Dosage: 24MG PER DAY
     Route: 048
     Dates: end: 20061114
  7. VITAMEDIN [Concomitant]
     Dosage: 150MG PER DAY
     Route: 048
     Dates: start: 20061110, end: 20061114
  8. VIBRAMYCIN [Concomitant]
     Dosage: 100MG PER DAY
     Route: 048
     Dates: start: 20061110, end: 20061114
  9. AZULENE [Concomitant]
     Dosage: 6MG PER DAY
     Route: 048
     Dates: start: 20061110, end: 20061114
  10. BIOFERMIN [Concomitant]
     Dosage: 3G PER DAY
     Route: 048
     Dates: start: 20061110, end: 20061114

REACTIONS (3)
  - CEREBRAL INFARCTION [None]
  - CONFUSIONAL STATE [None]
  - HEADACHE [None]
